FAERS Safety Report 6802036-X (Version None)
Quarter: 2010Q2

REPORT INFORMATION
  Report Type: 
  Country: None (occurrence: None)
  Receive Date: 20100629
  Receipt Date: 20071210
  Transmission Date: 20101027
  Serious: Yes (Other)
  Sender: FDA-Public Use
  Company Number: US-PFIZER INC-2007072357

PATIENT
  Sex: Male
  Weight: 37.2 kg

DRUGS (3)
  1. SOLU-CORTEF [Suspect]
     Indication: ADDISON'S DISEASE
     Route: 030
     Dates: start: 20070828
  2. HYDROCORTISONE [Concomitant]
     Route: 048
  3. FLUDROCORTISONE [Concomitant]

REACTIONS (1)
  - ANAPHYLACTIC REACTION [None]
